FAERS Safety Report 5900252-2 (Version None)
Quarter: 2008Q3

REPORT INFORMATION
  Report Type: 
  Country: None (occurrence: None)
  Receive Date: 20080926
  Receipt Date: 20080922
  Transmission Date: 20090109
  Serious: Yes (Other)
  Sender: FDA-Public Use
  Company Number: PHEH2003US04175

PATIENT
  Sex: Male
  Weight: 4.535 kg

DRUGS (1)
  1. ELIDEL [Suspect]
     Indication: DERMATITIS ATOPIC
     Dosage: UNK, BID
     Route: 061
     Dates: start: 20021231, end: 20041111

REACTIONS (11)
  - FOOD ALLERGY [None]
  - GROWTH RETARDATION [None]
  - LEARNING DISORDER [None]
  - MALAISE [None]
  - NASAL CONGESTION [None]
  - PHOTOSENSITIVITY REACTION [None]
  - PYREXIA [None]
  - RASH [None]
  - SKIN DISCOLOURATION [None]
  - VOMITING [None]
  - WEIGHT DECREASED [None]
